FAERS Safety Report 14062100 (Version 1)
Quarter: 2017Q4

REPORT INFORMATION
  Report Type: Spontaneous
  Country: GB (occurrence: GB)
  Receive Date: 20171009
  Receipt Date: 20171009
  Transmission Date: 20180321
  Serious: Yes (Disabling, Congenital Anomaly)
  Sender: FDA-Public Use
  Company Number: GB-ABBVIE-17P-167-2125548-00

PATIENT
  Sex: Male

DRUGS (1)
  1. EPILIM [Suspect]
     Active Substance: VALPROATE SODIUM
     Indication: MATERNAL EXPOSURE TIMING UNSPECIFIED
     Route: 064

REACTIONS (4)
  - Learning disability [Not Recovered/Not Resolved]
  - Foetal exposure during pregnancy [Unknown]
  - Speech disorder [Not Recovered/Not Resolved]
  - Dyspraxia [Not Recovered/Not Resolved]
